FAERS Safety Report 23866257 (Version 1)
Quarter: 2024Q2

REPORT INFORMATION
  Report Type: Spontaneous
  Country: IT (occurrence: IT)
  Receive Date: 20240517
  Receipt Date: 20240517
  Transmission Date: 20240716
  Serious: Yes (Other)
  Sender: FDA-Public Use
  Company Number: IT-RDY-LIT/ITA/24/0006687

PATIENT
  Age: 48 Year
  Sex: Female

DRUGS (2)
  1. AZACITIDINE [Suspect]
     Active Substance: AZACITIDINE
     Indication: Acute myeloid leukaemia
     Dosage: 75 MILLIGRAM/SQ. METER, CYCLICAL (3 CYCLES;  75?MG/M2 FOR 5-7?DAYS)
     Route: 058
  2. VENETOCLAX [Suspect]
     Active Substance: VENETOCLAX
     Indication: Acute myeloid leukaemia
     Dosage: 400 MILLIGRAM, ONCE A DAY (3 CYCLES; 400?MG/DAY FOR 14-28?DAYS)
     Route: 048

REACTIONS (3)
  - Treatment failure [Recovered/Resolved]
  - Disease progression [Recovered/Resolved]
  - Product use issue [Unknown]
